FAERS Safety Report 5274340-0 (Version None)
Quarter: 2007Q1

REPORT INFORMATION
  Report Type: 
  Country: None (occurrence: None)
  Receive Date: 20070323
  Receipt Date: 20070321
  Transmission Date: 20070707
  Serious: Yes (Hospitalization)
  Sender: FDA-Public Use
  Company Number: FR-MERCK-0702FRA00037

PATIENT
  Age: 63 Year
  Sex: Male
  Weight: 150 kg

DRUGS (9)
  1. HYZAAR [Suspect]
     Indication: HYPERTENSION
     Route: 048
     Dates: start: 20030601, end: 20070201
  2. ALBUTEROL SULFATE AND IPRATROPIUM BROMIDE [Concomitant]
     Indication: ASTHMA
  3. BECLOMETHASONE DIPROPIONATE [Concomitant]
     Indication: ASTHMA
  4. LORATADINE [Concomitant]
     Indication: HYPERSENSITIVITY
     Route: 048
  5. ZOLPIDEM TARTRATE [Concomitant]
     Indication: INSOMNIA
     Route: 048
  6. ACETAMINOPHEN [Concomitant]
     Route: 048
  7. FORMOTEROL FUMARATE [Concomitant]
     Indication: ASTHMA
  8. MONTELUKAST SODIUM [Concomitant]
     Indication: ASTHMA
     Route: 048
  9. SPIRONOLACTONE [Concomitant]
     Indication: HYPERTENSION
     Route: 048
     Dates: end: 20030601

REACTIONS (2)
  - DIARRHOEA [None]
  - PANCREATITIS ACUTE [None]
